FAERS Safety Report 7455686-4 (Version None)
Quarter: 2011Q2

REPORT INFORMATION
  Report Type: 
  Country: None (occurrence: None)
  Receive Date: 20110503
  Receipt Date: 20110426
  Transmission Date: 20111010
  Serious: Yes (Hospitalization)
  Sender: FDA-Public Use
  Company Number: FR-B.I. PHARMACEUTICALS,INC./RIDGEFIELD-2011-FF-00427FF

PATIENT
  Sex: Male

DRUGS (3)
  1. ACETAMINOPHEN [Concomitant]
     Dosage: 3000 MG
     Route: 048
     Dates: start: 20101207
  2. LYSANXIA [Concomitant]
     Route: 048
     Dates: start: 20101206
  3. PRADAXA [Suspect]
     Indication: KNEE ARTHROPLASTY
     Dosage: 220 MG
     Route: 048
     Dates: start: 20101206, end: 20101214

REACTIONS (2)
  - PHLEBITIS [None]
  - DRUG INEFFECTIVE [None]
